FAERS Safety Report 8853059 (Version 4)
Quarter: 2012Q4

REPORT INFORMATION
  Report Type: 
  Country: US (occurrence: US)
  Receive Date: 20121022
  Receipt Date: 20121204
  Transmission Date: 20130627
  Serious: No
  Sender: FDA-Public Use
  Company Number: US-009507513-1210USA008885

PATIENT
  Age: 51 None
  Sex: Female

DRUGS (3)
  1. PEGINTRON [Suspect]
     Indication: HEPATITIS C
     Dosage: UNK
     Dates: start: 20121003
  2. RIBAVIRIN [Suspect]
     Dosage: UNK
     Dates: start: 20121003
  3. TELAPREVIR [Suspect]
     Indication: HEPATITIS C
     Dosage: UNK
     Dates: start: 20121003

REACTIONS (5)
  - Injection site reaction [Unknown]
  - Decreased appetite [Unknown]
  - Injection site pain [Unknown]
  - Injection site erythema [Unknown]
  - Injection site reaction [Unknown]
